FAERS Safety Report 7364990-X (Version None)
Quarter: 2011Q1

REPORT INFORMATION
  Report Type: 
  Country: None (occurrence: None)
  Receive Date: 20110321
  Receipt Date: 20110309
  Transmission Date: 20110831
  Serious: Yes (Life-Threatening)
  Sender: FDA-Public Use
  Company Number: JP-PFIZER INC-2011015438

PATIENT
  Age: 49 Year
  Sex: Female

DRUGS (12)
  1. CELESTAMINE TAB [Concomitant]
     Dosage: UNK
     Route: 048
     Dates: end: 20101029
  2. PARIET [Concomitant]
     Dosage: 10 MG, DAILY
     Route: 048
  3. VOLTAREN [Concomitant]
     Dosage: 50 MG, DAILY
     Route: 054
     Dates: end: 20101029
  4. BLOPRESS [Concomitant]
     Indication: HYPERTENSION
     Dosage: 12 MG, DAILY
     Route: 048
     Dates: end: 20101029
  5. AMLODIPINE [Suspect]
     Indication: HYPERTENSION
     Dosage: 2.5 MG, DAILY
     Route: 048
     Dates: end: 20101029
  6. MERCAZOLE [Concomitant]
     Indication: HYPERTHYROIDISM
     Dosage: 5 MG, DAILY
     Route: 048
  7. MEVALOTIN [Concomitant]
     Indication: HYPERLIPIDAEMIA
     Dosage: 10 MG, DAILY
     Route: 048
     Dates: end: 20101029
  8. NEOMALLERMIN-TR [Concomitant]
     Dosage: 12 MG, DAILY
     Route: 048
     Dates: end: 20101029
  9. LENDORMIN [Concomitant]
     Dosage: 0.25 MG, DAILY
     Route: 048
     Dates: end: 20101029
  10. VOLTAREN [Concomitant]
     Dosage: 75 MG, DAILY
     Route: 048
     Dates: end: 20101029
  11. ANPLAG [Concomitant]
     Indication: VASCULITIS
     Dosage: 300 MG, DAILY
     Route: 048
  12. HERBESSER [Concomitant]
     Indication: HYPERTENSION
     Dosage: 200 MG, DAILY
     Route: 048
     Dates: end: 20101029

REACTIONS (1)
  - CIRCULATORY COLLAPSE [None]
